FAERS Safety Report 8454713-5 (Version None)
Quarter: 2012Q2

REPORT INFORMATION
  Report Type: 
  Country: None (occurrence: None)
  Receive Date: 20120614
  Receipt Date: 20120531
  Transmission Date: 20120825
  Serious: Yes (Hospitalization)
  Sender: FDA-Public Use
  Company Number: TPA2012A03224

PATIENT
  Age: 59 Year
  Sex: Male
  Weight: 73.7 kg

DRUGS (14)
  1. PIOGLITAZONE HYDROCHLORIDE [Suspect]
     Indication: HEPATIC STEATOSIS
     Dosage: 45 MG, 1 IN 1 D, PER ORAL
     Route: 048
     Dates: start: 20120127, end: 20120528
  2. FORMOTEROL FUMARATE [Concomitant]
  3. IPRATROPIUM BROMIDE [Concomitant]
  4. LORATADINE [Concomitant]
  5. SELENIUM SULFIDE [Concomitant]
  6. DARUNAVIR HYDRATE [Concomitant]
  7. OXYCONTIN [Concomitant]
  8. TRUVADA [Concomitant]
  9. ALBUTEROL [Concomitant]
  10. NORVIR [Concomitant]
  11. PIOGLITAZONE HCL [Suspect]
     Indication: HEPATIC STEATOSIS
     Dates: start: 20110225, end: 20120127
  12. ALBUTEROL/IPRATROPIUM (SALBUTAMOL, IPRATROPIUM) [Concomitant]
  13. IBUPROFEN [Concomitant]
  14. VARDENAFIL HYDROCHLORIDE (LEVITRA) [Concomitant]

REACTIONS (5)
  - OSTEONECROSIS [None]
  - OSTEOARTHRITIS [None]
  - JOINT EFFUSION [None]
  - MUSCLE OEDEMA [None]
  - BONE MARROW OEDEMA [None]
